FAERS Safety Report 6174774-6 (Version None)
Quarter: 2009Q2

REPORT INFORMATION
  Report Type: 
  Country: None (occurrence: None)
  Receive Date: 20090430
  Receipt Date: 20080918
  Transmission Date: 20091009
  Serious: No
  Sender: FDA-Public Use
  Company Number: US-ASTRAZENECA-2008UW19451

PATIENT
  Age: 30 Year
  Sex: Female
  Weight: 49.9 kg

DRUGS (2)
  1. NEXIUM [Suspect]
     Route: 048
  2. YAZ [Suspect]
     Route: 065

REACTIONS (1)
  - ECZEMA [None]
